FAERS Safety Report 5492870-3 (Version None)
Quarter: 2007Q4

REPORT INFORMATION
  Report Type: 
  Country: None (occurrence: None)
  Receive Date: 20071023
  Receipt Date: 20070808
  Transmission Date: 20080405
  Serious: No
  Sender: FDA-Public Use
  Company Number: US-BRISTOL-MYERS SQUIBB COMPANY-13873336

PATIENT
  Age: 20 Year

DRUGS (2)
  1. BUSPAR [Suspect]
  2. KEPPRA [Interacting]
     Indication: CONVULSION

REACTIONS (2)
  - CONVULSION [None]
  - DRUG INTERACTION [None]
